FAERS Safety Report 23423650 (Version 1)
Quarter: 2024Q1

REPORT INFORMATION
  Report Type: Spontaneous
  Country: US (occurrence: US)
  Receive Date: 20240119
  Receipt Date: 20240119
  Transmission Date: 20240410
  Serious: No
  Sender: FDA-Public Use
  Company Number: US-TAKEDA-2024TUS002946

PATIENT
  Age: 74 Year
  Sex: Female
  Weight: 68 kg

DRUGS (2)
  1. VELCADE [Suspect]
     Active Substance: BORTEZOMIB
     Indication: Plasma cell myeloma
     Dosage: UNK UNK, Q2WEEKS
     Route: 065
     Dates: start: 202304
  2. DARZALEX [Suspect]
     Active Substance: DARATUMUMAB
     Indication: Product used for unknown indication
     Dosage: UNK
     Route: 065

REACTIONS (5)
  - Peripheral swelling [Not Recovered/Not Resolved]
  - Contusion [Unknown]
  - Spinal disorder [Unknown]
  - Cough [Unknown]
  - Product administration error [Unknown]

NARRATIVE: CASE EVENT DATE: 20230801
